FAERS Safety Report 15953524 (Version 1)
Quarter: 2019Q1

REPORT INFORMATION
  Report Type: Spontaneous
  Country: US (occurrence: US)
  Receive Date: 20190212
  Receipt Date: 20190212
  Transmission Date: 20190417
  Serious: Yes (Other)
  Sender: FDA-Public Use
  Company Number: US-PFIZER INC-2019060216

PATIENT
  Age: 32 Year
  Sex: Male
  Weight: 71 kg

DRUGS (2)
  1. RAPAMUNE [Suspect]
     Active Substance: SIROLIMUS
     Indication: RENAL TRANSPLANT
     Dosage: 4 MG, DAILY (2 2 MG AND 1 1 MG TABLETS BY MOUTH ONCE A DAY, FOR A TOTAL OF 5 MG ONCE A DAY)
     Route: 048
  2. RAPAMUNE [Suspect]
     Active Substance: SIROLIMUS
     Dosage: 1 MG, DAILY (2 2 MG AND 1 1 MG TABLETS BY MOUTH ONCE A DAY, FOR A TOTAL OF 5 MG ONCE A DAY)
     Route: 048

REACTIONS (1)
  - Transplant rejection [Unknown]
